FAERS Safety Report 6884370-0 (Version None)
Quarter: 2010Q3

REPORT INFORMATION
  Report Type: 
  Country: None (occurrence: None)
  Receive Date: 20100729
  Receipt Date: 20100714
  Transmission Date: 20110219
  Serious: Yes (Other)
  Sender: FDA-Public Use
  Company Number: PHHY2010US46489

PATIENT
  Sex: Female

DRUGS (2)
  1. FEMARA [Suspect]
     Dosage: 2.5 MG, QD
     Route: 048
     Dates: start: 20090101
  2. ZOMETA [Suspect]
     Dosage: UNK
     Dates: start: 20090101

REACTIONS (4)
  - FALL [None]
  - HIP ARTHROPLASTY [None]
  - HIP SURGERY [None]
  - JOINT DISLOCATION [None]
